FAERS Safety Report 19415583 (Version 1)
Quarter: 2021Q2

REPORT INFORMATION
  Report Type: Spontaneous
  Country: US (occurrence: US)
  Receive Date: 20210614
  Receipt Date: 20210614
  Transmission Date: 20210717
  Serious: Yes (Disabling)
  Sender: FDA-Public Use
  Company Number: None

PATIENT
  Age: 78 Year
  Sex: Female
  Weight: 61.65 kg

DRUGS (5)
  1. LOW DOSE ASPIRIN [Concomitant]
     Active Substance: ASPIRIN
  2. CALCIUM WITH VIT D [Concomitant]
  3. IRON SUPPLEMENT [Concomitant]
     Active Substance: IRON
  4. TRAZODONE [Suspect]
     Active Substance: TRAZODONE HYDROCHLORIDE
     Indication: INSOMNIA
     Dosage: ?          QUANTITY:2 TABLET(S);?
     Route: 048
     Dates: start: 20210201, end: 20210520
  5. ALENDRONATE SODIUM. [Concomitant]
     Active Substance: ALENDRONATE SODIUM

REACTIONS (1)
  - Gait disturbance [None]
